FAERS Safety Report 8555602-8 (Version None)
Quarter: 2012Q3

REPORT INFORMATION
  Report Type: 
  Country: None (occurrence: None)
  Receive Date: 20120731
  Receipt Date: 20110811
  Transmission Date: 20120928
  Serious: No
  Sender: FDA-Public Use
  Company Number: US-ASTRAZENECA-2010SE31845

PATIENT
  Age: 52 Year
  Sex: Female

DRUGS (3)
  1. SEROQUEL [Suspect]
     Route: 048
  2. SEROQUEL [Suspect]
     Indication: SLEEP DISORDER
     Route: 048
  3. SEROQUEL [Suspect]
     Route: 048

REACTIONS (8)
  - ACTIVITIES OF DAILY LIVING IMPAIRED [None]
  - ABNORMAL BEHAVIOUR [None]
  - INSOMNIA [None]
  - OFF LABEL USE [None]
  - ROAD TRAFFIC ACCIDENT [None]
  - AGITATION [None]
  - DRUG DOSE OMISSION [None]
  - DYSPHONIA [None]
